FAERS Safety Report 11001628 (Version 1)
Quarter: 2015Q2

REPORT INFORMATION
  Report Type: Report from Study
  Country: CA (occurrence: CA)
  Receive Date: 20150408
  Receipt Date: 20150408
  Transmission Date: 20150821
  Serious: Yes (Other)
  Sender: FDA-Public Use
  Company Number: CA-BAYER-2015-084605

PATIENT
  Age: 49 Year
  Sex: Female
  Weight: 58.96 kg

DRUGS (1)
  1. BETASERON [Suspect]
     Active Substance: INTERFERON BETA-1B
     Indication: MULTIPLE SCLEROSIS
     Dosage: 0.25 MG, UNK
     Dates: start: 20090301, end: 20140830

REACTIONS (5)
  - Multiple sclerosis [None]
  - Pain [Recovered/Resolved]
  - Injection site pain [None]
  - Arthralgia [Recovered/Resolved]
  - Injection site bruising [None]

NARRATIVE: CASE EVENT DATE: 201406
